FAERS Safety Report 11574835 (Version 1)
Quarter: 2015Q3

REPORT INFORMATION
  Report Type: Spontaneous
  Country: US (occurrence: US)
  Receive Date: 20150916
  Receipt Date: 20150916
  Transmission Date: 20151125
  Serious: No
  Sender: FDA-Public Use
  Company Number: US-ELI_LILLY_AND_COMPANY-US200911003594

PATIENT
  Age: 73 Year
  Sex: Female

DRUGS (7)
  1. FLECAINIDE [Concomitant]
     Active Substance: FLECAINIDE
     Dosage: 100 MG, 2/D
  2. VYTORIN [Concomitant]
     Active Substance: EZETIMIBE\SIMVASTATIN
  3. SYNTHROID [Concomitant]
     Active Substance: LEVOTHYROXINE SODIUM
  4. COUMADIN [Concomitant]
     Active Substance: WARFARIN SODIUM
  5. FORTEO [Suspect]
     Active Substance: TERIPARATIDE
     Indication: OSTEOPOROSIS
     Dosage: 20 UG, DAILY (1/D)
     Dates: start: 200707, end: 20091104
  6. DILTIAZEM [Concomitant]
     Active Substance: DILTIAZEM
  7. NIASPAN [Concomitant]
     Active Substance: NIACIN

REACTIONS (3)
  - Abdominal pain upper [Recovered/Resolved]
  - Back pain [Recovered/Resolved]
  - Blood calcium increased [Recovered/Resolved]

NARRATIVE: CASE EVENT DATE: 200909
